FAERS Safety Report 5233798-3 (Version None)
Quarter: 2007Q1

REPORT INFORMATION
  Report Type: 
  Country: None (occurrence: None)
  Receive Date: 20061208
  Receipt Date: 20060223
  Transmission Date: 20070707
  Serious: Yes (Other)
  Sender: FDA-Public Use
  Company Number: 2006UW03120

PATIENT
  Age: 64 Year
  Sex: Male
  Weight: 72.574 kg

DRUGS (4)
  1. CRESTOR [Suspect]
     Indication: BLOOD CHOLESTEROL INCREASED
     Dosage: 5 MG DAILY PO
     Route: 048
  2. CRESTOR [Suspect]
     Indication: BLOOD CHOLESTEROL INCREASED
     Dosage: 10 MG DAILY PO
     Route: 048
  3. TENORETIC 100 [Concomitant]
  4. LEVOXYL [Concomitant]

REACTIONS (2)
  - GOUT [None]
  - PAIN IN EXTREMITY [None]
